FAERS Safety Report 16511181 (Version 1)
Quarter: 2019Q3

REPORT INFORMATION
  Report Type: Spontaneous
  Country: JP (occurrence: JP)
  Receive Date: 20190702
  Receipt Date: 20190702
  Transmission Date: 20191004
  Serious: Yes (Death, Other)
  Sender: FDA-Public Use
  Company Number: JP-009507513-1906JPN002749J

PATIENT
  Age: 66 Year
  Sex: Male
  Weight: 59 kg

DRUGS (6)
  1. ABILIFY [Suspect]
     Active Substance: ARIPIPRAZOLE
     Indication: SCHIZOPHRENIA
     Dosage: 400 MILLIGRAM, QM
     Route: 051
     Dates: start: 20190222, end: 20190531
  2. BELSOMRA [Suspect]
     Active Substance: SUVOREXANT
     Dosage: 15 MILLIGRAM, QD
     Route: 048
  3. ABILIFY [Concomitant]
     Active Substance: ARIPIPRAZOLE
     Dosage: UNK
     Route: 048
     Dates: start: 20190111
  4. LANDSEN [Suspect]
     Active Substance: CLONAZEPAM
     Dosage: 1 MILLIGRAM, QD
     Route: 048
  5. HALOPERIDOL. [Concomitant]
     Active Substance: HALOPERIDOL
     Dosage: UNK
     Route: 065
  6. RISPERDAL [Concomitant]
     Active Substance: RISPERIDONE
     Dosage: UNK
     Route: 065

REACTIONS (3)
  - Somnolence [Unknown]
  - Cardiac failure acute [Fatal]
  - Diet refusal [Unknown]

NARRATIVE: CASE EVENT DATE: 20190608
